FAERS Safety Report 13456288 (Version 1)
Quarter: 2017Q2

REPORT INFORMATION
  Report Type: Other
  Country: SE (occurrence: SE)
  Receive Date: 20170419
  Receipt Date: 20170419
  Transmission Date: 20170830
  Serious: Yes (Life-Threatening, Hospitalization)
  Sender: FDA-Public Use
  Company Number: SE-HIKMA PHARMACEUTICALS CO. LTD-2017SE004880

PATIENT

DRUGS (7)
  1. TAVEGYL [Concomitant]
     Active Substance: CLEMASTINE FUMARATE
     Dosage: 2 MG, UNK
     Dates: start: 20160415, end: 20160415
  2. IMUREL                             /00001501/ [Concomitant]
     Active Substance: AZATHIOPRINE SODIUM
  3. ALVEDON [Concomitant]
     Active Substance: ACETAMINOPHEN
     Dosage: 1 G, UNK
     Dates: start: 20160415, end: 20160415
  4. SOLU-CORTEF [Concomitant]
     Active Substance: HYDROCORTISONE SODIUM SUCCINATE
     Dosage: 2 ML, UNK
     Dates: start: 20160415, end: 20160415
  5. INFLECTRA [Suspect]
     Active Substance: INFLIXIMAB-DYYB
     Indication: COLITIS ULCERATIVE
     Dosage: 400 MG, DURING 2 HOURS
     Route: 042
     Dates: start: 20160415, end: 20160415
  6. COLAZID [Concomitant]
     Active Substance: BALSALAZIDE DISODIUM
  7. REMICADE [Concomitant]
     Active Substance: INFLIXIMAB

REACTIONS (6)
  - Anaphylactic reaction [Unknown]
  - Pharyngeal oedema [Recovered/Resolved]
  - Pruritus [Unknown]
  - Hypersensitivity [Unknown]
  - Rash [Unknown]
  - Urticaria [Recovered/Resolved]

NARRATIVE: CASE EVENT DATE: 20160420
